FAERS Safety Report 10386312 (Version 2)
Quarter: 2014Q3

REPORT INFORMATION
  Report Type: Spontaneous
  Country: FR (occurrence: FR)
  Receive Date: 20140815
  Receipt Date: 20140815
  Transmission Date: 20150326
  Serious: Yes (Other)
  Sender: FDA-Public Use
  Company Number: FR-LEO PHARMA-228733

PATIENT
  Age: 60 Year
  Sex: Male

DRUGS (1)
  1. PICATO [Suspect]
     Active Substance: INGENOL MEBUTATE
     Indication: PRODUCT USED FOR UNKNOWN INDICATION
     Dosage: 4 TUBES
     Route: 061
     Dates: start: 20140518, end: 20140518

REACTIONS (7)
  - Application site vesicles [Recovered/Resolved]
  - Skin lesion [Recovered/Resolved]
  - Incorrect drug administration duration [Unknown]
  - Application site pain [Recovered/Resolved]
  - Application site reaction [Unknown]
  - Accidental overdose [Recovered/Resolved]
  - Drug administered at inappropriate site [Unknown]

NARRATIVE: CASE EVENT DATE: 20140518
